FAERS Safety Report 9631401 (Version 1)
Quarter: 2013Q4

REPORT INFORMATION
  Report Type: Spontaneous
  Country: GB (occurrence: None)
  Receive Date: 20131015
  Receipt Date: 20131015
  Transmission Date: 20140711
  Serious: Yes (Other)
  Sender: FDA-Public Use
  Company Number: AUR-APL-2013-08340

PATIENT
  Age: 59 Year
  Sex: Female

DRUGS (2)
  1. NEVIRAPINE (NEVIRAPINE) [Suspect]
     Indication: HIV INFECTION
     Dates: start: 1999
  2. COMBIVIR [Suspect]
     Indication: HIV INFECTION
     Dates: start: 1999

REACTIONS (3)
  - Rash [None]
  - Stevens-Johnson syndrome [None]
  - Post inflammatory pigmentation change [None]
